FAERS Safety Report 7220157-7 (Version None)
Quarter: 2011Q1

REPORT INFORMATION
  Report Type: 
  Country: None (occurrence: None)
  Receive Date: 20110111
  Receipt Date: 20110105
  Transmission Date: 20110831
  Serious: Yes (Life-Threatening)
  Sender: FDA-Public Use
  Company Number: DE-BAXTER-2011BH000316

PATIENT
  Age: 27 Year
  Sex: Female
  Weight: 63 kg

DRUGS (10)
  1. ACYCLOVIR [Concomitant]
     Indication: PRODUCT USED FOR UNKNOWN INDICATION
     Dosage: 3X400MG
     Route: 065
  2. COTRIM [Concomitant]
     Indication: PRODUCT USED FOR UNKNOWN INDICATION
     Dosage: 1X1  3XWEEK
     Route: 065
  3. PARACETAMOL [Concomitant]
     Indication: PRODUCT USED FOR UNKNOWN INDICATION
     Dosage: 1G
     Route: 065
     Dates: start: 20100914
  4. ETOPOSIDE [Interacting]
     Indication: HODGKIN'S DISEASE
     Dosage: 300MG
     Route: 042
     Dates: start: 20100913, end: 20100915
  5. CYCLOPHOSPHAMIDE [Interacting]
     Indication: HODGKIN'S DISEASE
     Dosage: 1870MG
     Route: 042
     Dates: start: 20100913
  6. FENISTIL [Suspect]
     Indication: PRODUCT USED FOR UNKNOWN INDICATION
     Route: 065
     Dates: start: 20100914
  7. PREDNISOLONE [Interacting]
     Indication: HODGKIN'S DISEASE
     Dosage: 1X70MG
     Route: 048
     Dates: start: 20100913, end: 20100920
  8. DOXORUBICIN GENERIC [Interacting]
     Indication: HODGKIN'S DISEASE
     Dosage: 60MG
     Route: 042
     Dates: start: 20100913
  9. VORICONAZOLE [Interacting]
     Indication: BRONCHOPULMONARY ASPERGILLOSIS
     Dosage: 2X200MG
     Route: 048
     Dates: start: 20100813, end: 20100920
  10. RITUXIMAB [Suspect]
     Indication: PRODUCT USED FOR UNKNOWN INDICATION
     Route: 065
     Dates: start: 20100914

REACTIONS (3)
  - ACUTE PSYCHOSIS [None]
  - HALLUCINATION [None]
  - PERSONALITY CHANGE [None]
